FAERS Safety Report 4576078-1 (Version None)
Quarter: 2005Q1

REPORT INFORMATION
  Report Type: 
  Country: None (occurrence: None)
  Receive Date: 20050204
  Receipt Date: 20050122
  Transmission Date: 20050727
  Serious: Yes (Hospitalization)
  Sender: FDA-Public Use
  Company Number: 2005SE00462

PATIENT
  Age: 70 Year
  Sex: Male

DRUGS (5)
  1. MERREM [Suspect]
     Indication: STAPHYLOCOCCAL INFECTION
     Dosage: 1000 MG TID IV
     Route: 042
     Dates: start: 20050115, end: 20050115
  2. EUSAPRIM [Suspect]
     Indication: STAPHYLOCOCCAL INFECTION
     Dosage: SULFAMETHOXAZOLE+TRIMETOPRIM 20MG+100MG,2 TABLETS PER DAY PO
     Route: 048
     Dates: start: 20050114, end: 20050115
  3. NITROLGICERINE [Concomitant]
  4. ACTRAPID HUMAN [Concomitant]
  5. OMEPRAZOLE [Concomitant]

REACTIONS (4)
  - ABDOMINAL PAIN [None]
  - HENOCH-SCHONLEIN PURPURA [None]
  - RENAL FAILURE [None]
  - VASCULITIS [None]
